FAERS Safety Report 7919024-2 (Version None)
Quarter: 2011Q4

REPORT INFORMATION
  Report Type: 
  Country: None (occurrence: None)
  Receive Date: 20111116
  Receipt Date: 20111104
  Transmission Date: 20120403
  Serious: Yes (Hospitalization)
  Sender: FDA-Public Use
  Company Number: US-ELI_LILLY_AND_COMPANY-US201111003317

PATIENT
  Sex: Female

DRUGS (16)
  1. JANUVIA [Concomitant]
  2. ASCORBIC ACID [Concomitant]
  3. MORPHINE [Concomitant]
  4. HYZAAR [Concomitant]
  5. PREDNISONE TAB [Concomitant]
  6. OXYCONTIN [Concomitant]
     Indication: PAIN
     Dosage: UNK, PRN
  7. IRON [Concomitant]
  8. MULTI-VITAMIN [Concomitant]
  9. FORTEO [Suspect]
     Indication: OSTEOPOROSIS
     Dosage: 20 UG, QD
     Dates: start: 20110818
  10. LANTUS [Concomitant]
  11. CALCIUM [Concomitant]
  12. ANALGESICS [Concomitant]
     Indication: PAIN
  13. PERCOCET [Concomitant]
     Indication: PAIN
     Dosage: UNK, PRN
  14. ZOCOR [Concomitant]
  15. ASPIRIN [Concomitant]
  16. PRILOSEC [Concomitant]

REACTIONS (1)
  - FEELING ABNORMAL [None]
